FAERS Safety Report 7528502-X (Version None)
Quarter: 2011Q2

REPORT INFORMATION
  Report Type: 
  Country: None (occurrence: None)
  Receive Date: 20110607
  Receipt Date: 20090921
  Transmission Date: 20111010
  Serious: No
  Sender: FDA-Public Use
  Company Number: US-ASTRAZENECA-2009SE30471

PATIENT
  Sex: Female

DRUGS (4)
  1. HYDROCHLOROTHIAZIDE [Concomitant]
  2. PRILOSEC OTC [Suspect]
     Route: 048
     Dates: end: 20090920
  3. BLOOD PRESSURE [Concomitant]
  4. CORTISONE ACETATE [Concomitant]

REACTIONS (4)
  - ERUCTATION [None]
  - DRUG INEFFECTIVE [None]
  - FLATULENCE [None]
  - INCORRECT DRUG ADMINISTRATION DURATION [None]
